FAERS Safety Report 15715547 (Version 1)
Quarter: 2018Q4

REPORT INFORMATION
  Report Type: Spontaneous
  Country: TR (occurrence: TR)
  Receive Date: 20181212
  Receipt Date: 20181212
  Transmission Date: 20190205
  Serious: Yes (Hospitalization)
  Sender: FDA-Public Use
  Company Number: TR-FRESENIUS KABI-FK201812669

PATIENT
  Age: 49 Year
  Sex: Male

DRUGS (2)
  1. ATROPINE (MANUFACTURER UNKNOWN) [Suspect]
     Active Substance: ATROPINE
     Indication: BRADYCARDIA
     Route: 065
  2. BUPIVACAINE (MANUFACTURER UNKNOWN) [Suspect]
     Active Substance: BUPIVACAINE
     Indication: SPINAL ANAESTHESIA
     Route: 024

REACTIONS (3)
  - Unmasking of previously unidentified disease [Recovered/Resolved]
  - Cardiac arrest [Recovered/Resolved]
  - Brugada syndrome [Recovered/Resolved]
